FAERS Safety Report 8226813-6 (Version None)
Quarter: 2012Q1

REPORT INFORMATION
  Report Type: 
  Country: None (occurrence: None)
  Receive Date: 20120322
  Receipt Date: 20120313
  Transmission Date: 20120608
  Serious: Yes (Hospitalization)
  Sender: FDA-Public Use
  Company Number: US-BAYER-2011-088262

PATIENT
  Age: 27 Year
  Sex: Female
  Weight: 88.435 kg

DRUGS (3)
  1. YASMIN [Suspect]
     Dosage: UNK
     Route: 048
     Dates: start: 20020101, end: 20090101
  2. YAZ [Suspect]
     Dosage: UNK
     Route: 048
     Dates: start: 20020101, end: 20090101
  3. DROSPIRENONE AND ETHINYL ESTRADIOL [Suspect]
     Dosage: UNK
     Route: 048
     Dates: start: 20020101, end: 20090101

REACTIONS (7)
  - CHOLECYSTITIS CHRONIC [None]
  - GALLBLADDER DISORDER [None]
  - PYREXIA [None]
  - ABDOMINAL PAIN UPPER [None]
  - INJURY [None]
  - VOMITING [None]
  - MALAISE [None]
